FAERS Safety Report 8509932-6 (Version None)
Quarter: 2012Q3

REPORT INFORMATION
  Report Type: 
  Country: None (occurrence: None)
  Receive Date: 20120713
  Receipt Date: 20120709
  Transmission Date: 20120928
  Serious: Yes (Hospitalization)
  Sender: FDA-Public Use
  Company Number: US-009507513-0908USA02682

PATIENT

DRUGS (1)
  1. FOSAMAX [Suspect]
     Dosage: 70 MG, QW
     Route: 048
     Dates: start: 20020101, end: 20080901

REACTIONS (4)
  - FEMUR FRACTURE [None]
  - OSTEOPOROSIS [None]
  - LOWER LIMB FRACTURE [None]
  - STRESS FRACTURE [None]
